FAERS Safety Report 11328913 (Version 4)
Quarter: 2024Q1

REPORT INFORMATION
  Report Type: Spontaneous
  Country: US (occurrence: US)
  Receive Date: 20150801
  Receipt Date: 20240110
  Transmission Date: 20240409
  Serious: Yes (Life-Threatening, Hospitalization, Other)
  Sender: FDA-Public Use
  Company Number: US-AUROBINDO-AUR-APL-2015-06783

PATIENT
  Age: 65 Year
  Sex: Female

DRUGS (3)
  1. ACYCLOVIR [Suspect]
     Active Substance: ACYCLOVIR
     Indication: Herpes zoster cutaneous disseminated
     Dosage: 1 G, TOTAL
     Route: 042
  2. VALACYCLOVIR HYDROCHLORIDE [Suspect]
     Active Substance: VALACYCLOVIR HYDROCHLORIDE
     Indication: Herpes zoster cutaneous disseminated
     Dosage: 1 G EVERY 8 HOURS
     Route: 065
  3. PREDNISONE [Suspect]
     Active Substance: PREDNISONE
     Indication: Herpes zoster cutaneous disseminated
     Dosage: UNK
     Route: 065

REACTIONS (11)
  - Neurotoxicity [Recovered/Resolved]
  - Ischaemia [Recovered/Resolved]
  - Myoclonus [Recovered/Resolved]
  - Sinus tachycardia [Recovered/Resolved]
  - Hallucination [Recovered/Resolved]
  - Agitation [Recovered/Resolved]
  - Affect lability [Recovered/Resolved]
  - Electrocardiogram T wave inversion [Recovered/Resolved]
  - Electrocardiogram T wave inversion [Recovered/Resolved]
  - Condition aggravated [Recovered/Resolved]
  - Psychotic disorder [Unknown]
